FAERS Safety Report 5496394-9 (Version None)
Quarter: 2007Q4

REPORT INFORMATION
  Report Type: 
  Country: None (occurrence: None)
  Receive Date: 20071025
  Receipt Date: 20070606
  Transmission Date: 20080405
  Serious: No
  Sender: FDA-Public Use
  Company Number: A0645785A

PATIENT
  Age: 78 Year
  Sex: Female

DRUGS (9)
  1. ADVAIR DISKUS 100/50 [Suspect]
     Indication: PULMONARY HYPERTENSION
     Dosage: 1PUFF TWICE PER DAY
     Route: 055
     Dates: start: 20060701
  2. ALBUTEROL [Concomitant]
  3. UNKNOWN MEDICATION [Concomitant]
  4. LIPITOR [Concomitant]
  5. DETROL [Concomitant]
  6. ENALAPRIL MALEATE [Concomitant]
  7. MIRAPEX [Concomitant]
  8. WARFARIN SODIUM [Concomitant]
  9. CARBIDOPA [Concomitant]

REACTIONS (3)
  - DYSPNOEA [None]
  - DYSPNOEA EXERTIONAL [None]
  - PHARMACEUTICAL PRODUCT COMPLAINT [None]
